FAERS Safety Report 21553536 (Version 3)
Quarter: 2022Q4

REPORT INFORMATION
  Report Type: Report from Study
  Country: BR (occurrence: BR)
  Receive Date: 20221104
  Receipt Date: 20221121
  Transmission Date: 20230113
  Serious: Yes (Hospitalization)
  Sender: FDA-Public Use
  Company Number: BR-JNJFOC-20221056396

PATIENT
  Age: 44 Year
  Sex: Female
  Weight: 127.8 kg

DRUGS (21)
  1. ESKETAMINE [Suspect]
     Active Substance: ESKETAMINE
     Indication: Depression
     Dosage: MED KIT NUMBER: 118670, 118671, 118672
     Dates: start: 20171205
  2. COVID-19 VACCINE [Concomitant]
     Indication: COVID-19 prophylaxis
     Dosage: 1 DOSE
     Route: 030
     Dates: start: 20210526, end: 20210526
  3. COVID-19 VACCINE [Concomitant]
     Dosage: 1 DOSE
     Route: 030
     Dates: start: 20210821, end: 20210821
  4. SERTRALINE [Concomitant]
     Active Substance: SERTRALINE HYDROCHLORIDE
     Indication: Depression
     Route: 048
     Dates: start: 20210510, end: 20210606
  5. SERTRALINE [Concomitant]
     Active Substance: SERTRALINE HYDROCHLORIDE
     Route: 048
     Dates: start: 20210607, end: 20210705
  6. SERTRALINE [Concomitant]
     Active Substance: SERTRALINE HYDROCHLORIDE
     Route: 048
     Dates: start: 20210706
  7. IBUPROFEN [Concomitant]
     Active Substance: IBUPROFEN
     Indication: Tooth fracture
     Route: 048
     Dates: start: 202205, end: 202205
  8. IBUPROFEN [Concomitant]
     Active Substance: IBUPROFEN
     Indication: Pain in extremity
     Route: 048
     Dates: start: 20220120, end: 20220121
  9. IBUPROFEN [Concomitant]
     Active Substance: IBUPROFEN
     Route: 048
     Dates: start: 20210704, end: 20210704
  10. ACETAMINOPHEN [Concomitant]
     Active Substance: ACETAMINOPHEN
     Indication: Back pain
     Route: 048
     Dates: start: 20210901, end: 20210901
  11. ACETAMINOPHEN [Concomitant]
     Active Substance: ACETAMINOPHEN
     Indication: Headache
  12. ACETAMINOPHEN [Concomitant]
     Active Substance: ACETAMINOPHEN
     Indication: Tooth fracture
  13. CYCLOBENZAPRINE [Concomitant]
     Active Substance: CYCLOBENZAPRINE
     Indication: Back pain
     Route: 048
     Dates: start: 20210901, end: 20210901
  14. CYCLOBENZAPRINE [Concomitant]
     Active Substance: CYCLOBENZAPRINE
     Indication: Headache
     Route: 048
     Dates: start: 20210901, end: 20210901
  15. CYCLOBENZAPRINE [Concomitant]
     Active Substance: CYCLOBENZAPRINE
     Route: 048
     Dates: start: 20220516, end: 20220516
  16. ACYCLOVIR [Concomitant]
     Active Substance: ACYCLOVIR
     Indication: Oral herpes
     Route: 048
     Dates: start: 20220609, end: 20220616
  17. AMOXICILLIN\CLAVULANIC ACID [Concomitant]
     Active Substance: AMOXICILLIN\CLAVULANIC ACID
     Indication: Tooth fracture
     Dosage: 375/125 MG
     Route: 048
  18. DESOGESTREL [Concomitant]
     Active Substance: DESOGESTREL
     Indication: Oral contraception
     Route: 048
     Dates: start: 200902
  19. LAMOTRIGINE [Concomitant]
     Active Substance: LAMOTRIGINE
     Indication: Depression
     Route: 048
     Dates: start: 20200805
  20. LEVOTHYROXINE [Concomitant]
     Active Substance: LEVOTHYROXINE
     Indication: Hypothyroidism
     Route: 048
     Dates: start: 20210128
  21. ZOLPIDEM [Concomitant]
     Active Substance: ZOLPIDEM TARTRATE
     Indication: Depression
     Route: 048
     Dates: start: 20220330

REACTIONS (1)
  - Tonsillar hypertrophy [Recovered/Resolved]

NARRATIVE: CASE EVENT DATE: 20221014
